FAERS Safety Report 18723056 (Version 1)
Quarter: 2021Q1

REPORT INFORMATION
  Report Type: Spontaneous
  Country: US (occurrence: US)
  Receive Date: 20210110
  Receipt Date: 20210110
  Transmission Date: 20210419
  Serious: No
  Sender: FDA-Public Use
  Company Number: None

PATIENT
  Age: 78 Year
  Sex: Male
  Weight: 89 kg

DRUGS (14)
  1. ALBUTEROL INHALER PRN [Concomitant]
  2. CULTURELLE 1 CAP DAILY [Concomitant]
  3. VITAMIN C 1000 MG DAILY [Concomitant]
  4. MELATONIN 6 MG AT BEDTIME PRN [Concomitant]
  5. ZINC 50 MG DAILY [Concomitant]
  6. HEPARIN 5000 UNITS SQ Q8H [Concomitant]
  7. REMDESIVIR. [Suspect]
     Active Substance: REMDESIVIR
  8. ATORVASTAIN 40 MG DAILY [Concomitant]
  9. DEXAMETHASONE 6 MG DAILY [Concomitant]
  10. FUROSEMIDE 20 MG ONCE [Concomitant]
  11. GUAIFENESIN 600 MG Q12H [Concomitant]
  12. INSULIN LISPRO SLIDING SCALE [Concomitant]
  13. VITAMIN D2 50000 UNITS WEEKLY [Concomitant]
  14. TAMSULOSIN 0.4 MG DAILY [Concomitant]

REACTIONS (2)
  - Muscle twitching [None]
  - Dyskinesia [None]

NARRATIVE: CASE EVENT DATE: 20210110
